FAERS Safety Report 7121464-9 (Version None)
Quarter: 2010Q4

REPORT INFORMATION
  Report Type: 
  Country: None (occurrence: None)
  Receive Date: 20101124
  Receipt Date: 20101117
  Transmission Date: 20110411
  Serious: Yes (Other)
  Sender: FDA-Public Use
  Company Number: CHPA2010CA17892

PATIENT
  Age: 62 Year
  Sex: Female
  Weight: 58.957 kg

DRUGS (1)
  1. NICOTINE [Suspect]
     Indication: SMOKING CESSATION THERAPY
     Dosage: 21 MG, QD
     Route: 062
     Dates: start: 20101002, end: 20101117

REACTIONS (3)
  - DRY MOUTH [None]
  - HYPERTENSION [None]
  - INTENTIONAL DRUG MISUSE [None]
